FAERS Safety Report 6804786-8 (Version None)
Quarter: 2010Q2

REPORT INFORMATION
  Report Type: 
  Country: None (occurrence: None)
  Receive Date: 20100628
  Receipt Date: 20070523
  Transmission Date: 20101027
  Serious: No
  Sender: FDA-Public Use
  Company Number: US-PFIZER INC-2007042381

PATIENT
  Sex: Male

DRUGS (1)
  1. GEODON [Suspect]
     Route: 048
     Dates: start: 20070101, end: 20070101

REACTIONS (3)
  - FATIGUE [None]
  - SENSATION OF HEAVINESS [None]
  - SOMNOLENCE [None]
